FAERS Safety Report 10560151 (Version 7)
Quarter: 2015Q2

REPORT INFORMATION
  Report Type: Spontaneous
  Country: US (occurrence: US)
  Receive Date: 20141103
  Receipt Date: 20150616
  Transmission Date: 20150821
  Serious: Yes (Other)
  Sender: FDA-Public Use
  Company Number: US-GE HEALTHCARE MEDICAL DIAGNOSTICS-OSCN-PR-1410S-0165

PATIENT
  Age: 33 Year
  Sex: Male

DRUGS (17)
  1. FOLIC ACID. [Concomitant]
     Active Substance: FOLIC ACID
  2. IRON [Concomitant]
     Active Substance: IRON
  3. SPECTRAVITE [Concomitant]
  4. NEURONTIN [Concomitant]
     Active Substance: GABAPENTIN
  5. PERSANTINE [Concomitant]
     Active Substance: DIPYRIDAMOLE
  6. IODIXANOL [Concomitant]
     Active Substance: IODIXANOL
     Route: 065
     Dates: start: 20050630, end: 20050630
  7. OMNISCAN [Suspect]
     Active Substance: GADODIAMIDE
     Indication: TREMOR
     Dosage: DOSE NOT REPORTED
     Route: 065
     Dates: start: 20060119, end: 20060119
  8. COLACE [Concomitant]
     Active Substance: DOCUSATE SODIUM
  9. IOHEXOL [Concomitant]
     Active Substance: IOHEXOL
     Route: 065
     Dates: start: 20050628, end: 20050628
  10. OMNISCAN [Suspect]
     Active Substance: GADODIAMIDE
     Indication: ARTERIOVENOUS MALFORMATION
     Dosage: DOSE NOT REPORTED
     Route: 065
     Dates: start: 20070111, end: 20070111
  11. PREDNISONE. [Concomitant]
     Active Substance: PREDNISONE
  12. IODIXANOL [Concomitant]
     Active Substance: IODIXANOL
     Route: 065
     Dates: start: 20050623, end: 20050623
  13. IODIXANOL [Concomitant]
     Active Substance: IODIXANOL
     Route: 065
     Dates: start: 20090407, end: 20090407
  14. NIFEDIPINE ER [Concomitant]
     Active Substance: NIFEDIPINE
  15. COUMADIN [Concomitant]
     Active Substance: WARFARIN SODIUM
  16. OMNISCAN [Suspect]
     Active Substance: GADODIAMIDE
     Indication: DIAGNOSTIC PROCEDURE
  17. VALIUM [Concomitant]
     Active Substance: DIAZEPAM

REACTIONS (1)
  - Nephrogenic systemic fibrosis [Not Recovered/Not Resolved]

NARRATIVE: CASE EVENT DATE: 200605
